FAERS Safety Report 5719870-X (Version None)
Quarter: 2008Q2

REPORT INFORMATION
  Report Type: 
  Country: None (occurrence: None)
  Receive Date: 20080428
  Receipt Date: 20080416
  Transmission Date: 20081010
  Serious: Yes (Hospitalization)
  Sender: FDA-Public Use
  Company Number: US-MERCK-0711USA03258

PATIENT
  Age: 58 Year
  Sex: Female
  Weight: 48 kg

DRUGS (1)
  1. FOSAMAX [Suspect]
     Indication: OSTEOPOROSIS PROPHYLAXIS
     Route: 048
     Dates: start: 20040101, end: 20060601

REACTIONS (13)
  - BONE DENSITY DECREASED [None]
  - EAR PAIN [None]
  - INCISION SITE INFECTION [None]
  - INSOMNIA [None]
  - MALAISE [None]
  - NAUSEA [None]
  - OSTEOMYELITIS [None]
  - OSTEONECROSIS [None]
  - OSTEOPETROSIS [None]
  - PAIN IN JAW [None]
  - SINUSITIS [None]
  - TOOTH ABSCESS [None]
  - VOMITING [None]
